FAERS Safety Report 6596514-9 (Version None)
Quarter: 2010Q1

REPORT INFORMATION
  Report Type: 
  Country: None (occurrence: None)
  Receive Date: 20100223
  Receipt Date: 20100211
  Transmission Date: 20100710
  Serious: Yes (Hospitalization, Other)
  Sender: FDA-Public Use
  Company Number: US-ROCHE-685922

PATIENT
  Age: 35 Year
  Sex: Male

DRUGS (4)
  1. MYCOPHENOLATE MOFETIL [Suspect]
     Route: 065
  2. ANTI-THYMOCYTE GLOBULIN NOS [Suspect]
     Route: 065
  3. ALEMTUZUMAB [Suspect]
     Route: 065
  4. TACROLIMUS [Suspect]
     Route: 065

REACTIONS (5)
  - CATHETER SITE INFECTION [None]
  - CLOSTRIDIAL INFECTION [None]
  - MYCOBACTERIUM ABSCESSUS INFECTION [None]
  - TRANSPLANT REJECTION [None]
  - VASCULAR PSEUDOANEURYSM [None]
